FAERS Safety Report 19830941 (Version 1)
Quarter: 2021Q3

REPORT INFORMATION
  Report Type: Spontaneous
  Country: US (occurrence: US)
  Receive Date: 20210915
  Receipt Date: 20210915
  Transmission Date: 20211014
  Serious: No
  Sender: FDA-Public Use
  Company Number: None

PATIENT
  Age: 55 Year
  Sex: Female
  Weight: 138 kg

DRUGS (8)
  1. MELOXICAM. [Concomitant]
     Active Substance: MELOXICAM
  2. FOLIC [Concomitant]
     Active Substance: FOLIC ACID
  3. ICY HOT MEDICATED NO MESS APPLICATOR [Suspect]
     Active Substance: MENTHOL
     Indication: ARTHRALGIA
     Route: 061
     Dates: start: 20210912, end: 20210912
  4. MULTI [Concomitant]
  5. BORON [Concomitant]
     Active Substance: BORON
  6. TYLENOL [Concomitant]
     Active Substance: ACETAMINOPHEN
  7. VIT D [Concomitant]
     Active Substance: VITAMIN D NOS
  8. BIOTIN [Concomitant]
     Active Substance: BIOTIN

REACTIONS (3)
  - Application site rash [None]
  - Rash erythematous [None]
  - Blister [None]

NARRATIVE: CASE EVENT DATE: 20210912
